FAERS Safety Report 10662060 (Version 2)
Quarter: 2015Q2

REPORT INFORMATION
  Report Type: Report from Study
  Country: TR (occurrence: TR)
  Receive Date: 20141218
  Receipt Date: 20150528
  Transmission Date: 20150821
  Serious: Yes (Hospitalization, Other)
  Sender: FDA-Public Use
  Company Number: TR-NOVOPROD-432542

PATIENT
  Sex: Male
  Weight: 2.48 kg

DRUGS (2)
  1. NOVORAPID [Suspect]
     Active Substance: INSULIN ASPART
     Indication: GESTATIONAL DIABETES
     Dosage: 6 U, QD
     Route: 064
     Dates: start: 20140805, end: 20140924
  2. LEVOTIRON [Concomitant]
     Active Substance: LEVOTHYROXINE SODIUM
     Indication: THYROID DISORDER
     Dosage: 1X1
     Route: 064
     Dates: start: 2011

REACTIONS (3)
  - Foetal exposure during pregnancy [Recovered/Resolved]
  - Immature respiratory system [Recovered/Resolved]
  - Premature baby [Unknown]

NARRATIVE: CASE EVENT DATE: 20140805
